FAERS Safety Report 9709770 (Version 1)
Quarter: 2013Q4

REPORT INFORMATION
  Report Type: Spontaneous
  Country: US (occurrence: US)
  Receive Date: 20131126
  Receipt Date: 20131126
  Transmission Date: 20140711
  Serious: Yes (Death, Hospitalization, Other)
  Sender: FDA-Public Use
  Company Number: US-BRISTOL-MYERS SQUIBB COMPANY-19808526

PATIENT
  Age: 54 Year
  Sex: Male
  Weight: 68.03 kg

DRUGS (25)
  1. CARBOPLATIN [Suspect]
     Indication: NON-SMALL CELL LUNG CANCER
  2. TAXOL [Suspect]
     Indication: NON-SMALL CELL LUNG CANCER
  3. POMALIDOMIDE [Suspect]
     Indication: PLASMA CELL MYELOMA RECURRENT
  4. ZOMETA [Concomitant]
  5. INTERFERON [Concomitant]
     Indication: HEPATITIS C
  6. RIBAVIRIN [Concomitant]
     Indication: HEPATITIS C
     Dates: start: 201103
  7. OXYGEN [Concomitant]
     Indication: CHRONIC OBSTRUCTIVE PULMONARY DISEASE
  8. APIDRA [Concomitant]
  9. ASPIRIN [Concomitant]
  10. LANTUS [Concomitant]
     Dosage: 1DF= 15 UNITS NOS.
  11. METOPROLOL [Concomitant]
     Dosage: 1DF= 50MG,1/2 TABLET.
     Route: 048
  12. SIMVASTIN [Concomitant]
     Route: 048
  13. NIACIN [Concomitant]
     Dosage: AT BEDTIME
  14. B12 [Concomitant]
  15. LISINOPRIL [Concomitant]
  16. HYDROXYZINE [Concomitant]
  17. CYMBALTA [Concomitant]
     Route: 048
  18. LORTAB [Concomitant]
     Indication: BACK PAIN
     Dosage: 1DF=10/325MG
  19. LYRICA [Concomitant]
  20. COMBIVENT [Concomitant]
     Dosage: 1DF= 1 PUFF
  21. OMEPRAZOLE [Concomitant]
  22. ALPRAZOLAM [Concomitant]
  23. FUROSEMIDE [Concomitant]
     Indication: LOCAL SWELLING
  24. OXYCODONE [Concomitant]
  25. WELLBUTRIN [Concomitant]

REACTIONS (5)
  - Bacterial sepsis [Fatal]
  - Febrile neutropenia [Unknown]
  - Multi-organ failure [Unknown]
  - Plasma cell myeloma recurrent [Unknown]
  - Pancytopenia [Unknown]
